FAERS Safety Report 18283974 (Version 14)
Quarter: 2021Q4

REPORT INFORMATION
  Report Type: Report from Study
  Country: EE (occurrence: None)
  Receive Date: 20200918
  Receipt Date: 20211217
  Transmission Date: 20220303
  Serious: Yes (Life-Threatening, Hospitalization)
  Sender: FDA-Public Use
  Company Number: EE-EISAI MEDICAL RESEARCH-EC-2020-080707

PATIENT
  Age: 55 Year
  Sex: Male
  Weight: 56 kg

DRUGS (11)
  1. LENVATINIB [Suspect]
     Active Substance: LENVATINIB
     Indication: Non-small cell lung cancer metastatic
     Route: 048
     Dates: start: 20190905, end: 20200909
  2. PEMBROLIZUMAB [Suspect]
     Active Substance: PEMBROLIZUMAB
     Indication: Non-small cell lung cancer metastatic
     Route: 041
     Dates: start: 20190905, end: 20200724
  3. PEMBROLIZUMAB [Suspect]
     Active Substance: PEMBROLIZUMAB
     Route: 041
     Dates: start: 20190817, end: 20190817
  4. APIDRA [Concomitant]
     Active Substance: INSULIN GLULISINE
     Dates: start: 201901
  5. TOUJEO [Concomitant]
     Active Substance: INSULIN GLARGINE
     Dates: start: 201901
  6. IMOVANE [Concomitant]
     Active Substance: ZOPICLONE
     Dates: start: 20200319, end: 20210519
  7. PANTOPRAZOLE [Concomitant]
     Active Substance: PANTOPRAZOLE
     Dates: start: 20200130, end: 20210519
  8. DEXAMETHASONE [Concomitant]
     Active Substance: DEXAMETHASONE
     Dates: start: 20200521, end: 20210519
  9. ALGOCALM [Concomitant]
     Dates: start: 20200521, end: 20200912
  10. ALGOCALM [Concomitant]
     Dates: start: 20200706, end: 20200912
  11. PIPERACILLIN SODIUM\TAZOBACTAM SODIUM [Concomitant]
     Active Substance: PIPERACILLIN SODIUM\TAZOBACTAM SODIUM
     Dates: start: 20200903, end: 20200915

REACTIONS (2)
  - Atelectasis [Not Recovered/Not Resolved]
  - Pneumothorax [Not Recovered/Not Resolved]

NARRATIVE: CASE EVENT DATE: 20200906
